FAERS Safety Report 23337300 (Version 1)
Quarter: 2023Q4

REPORT INFORMATION
  Report Type: Spontaneous
  Country: US (occurrence: US)
  Receive Date: 20231226
  Receipt Date: 20231226
  Transmission Date: 20240109
  Serious: Yes (Other)
  Sender: FDA-Public Use
  Company Number: US-AMGEN-USASP2023227114

PATIENT
  Age: 73 Year
  Sex: Female

DRUGS (1)
  1. TAVNEOS [Suspect]
     Active Substance: AVACOPAN
     Indication: Microscopic polyangiitis
     Dosage: 3 DOSAGE FORM, BID (3 CAPSULES BY MOUTH TWO TIMES A DAY WITH FOOD)
     Route: 048
     Dates: start: 20220804

REACTIONS (1)
  - Dialysis [Unknown]
